FAERS Safety Report 12008689 (Version 1)
Quarter: 2016Q1

REPORT INFORMATION
  Report Type: Spontaneous
  Country: US (occurrence: None)
  Receive Date: 20160203
  Receipt Date: 20160203
  Transmission Date: 20160526
  Serious: Yes (Hospitalization)
  Sender: FDA-Public Use
  Company Number: None

PATIENT
  Age: 63 Year
  Sex: Female
  Weight: 68.95 kg

DRUGS (5)
  1. VENLAFAXINE [Suspect]
     Active Substance: VENLAFAXINE HYDROCHLORIDE
     Indication: DEPRESSION
     Dosage: 2 AT BEDTIME
     Route: 048
  2. DAYLISINOPRIL [Concomitant]
  3. EFFEXOR [Concomitant]
     Active Substance: VENLAFAXINE HYDROCHLORIDE
  4. AMLODIPINE TAB [Concomitant]
  5. ATORVASTATIN [Concomitant]
     Active Substance: ATORVASTATIN

REACTIONS (7)
  - Anxiety [None]
  - Blood pressure increased [None]
  - Palpitations [None]
  - Vision blurred [None]
  - Cardiac murmur [None]
  - Blindness transient [None]
  - Tremor [None]

NARRATIVE: CASE EVENT DATE: 20160122
